FAERS Safety Report 8436495 (Version 3)
Quarter: 2013Q4

REPORT INFORMATION
  Report Type: Spontaneous
  Country: US (occurrence: US)
  Receive Date: 20120301
  Receipt Date: 20131108
  Transmission Date: 20140711
  Serious: Yes (Disabling, Other)
  Sender: FDA-Public Use
  Company Number: US-009507513-1202USA03717

PATIENT
  Age: 48 Year
  Sex: Female
  Weight: 89.81 kg

DRUGS (21)
  1. ZOCOR [Suspect]
     Indication: BLOOD CHOLESTEROL INCREASED
     Dosage: 40 MG, QD
     Route: 048
  2. LANTUS [Suspect]
     Indication: DIABETES MELLITUS
     Dosage: 80 UNITS IN MORNING, 90 UNITS AT NIGHT
  3. HUMULIN R [Suspect]
     Indication: DIABETES MELLITUS
     Dosage: 24 IU, TID
  4. ISOSORBIDE MONONITRATE [Suspect]
     Indication: CARDIAC DISORDER
     Dosage: 30 MG, TID
  5. LOMOTIL [Suspect]
     Indication: CROHN^S DISEASE
     Dosage: 2.5 MG, QID
     Route: 048
  6. GENERLAC [Suspect]
     Indication: CROHN^S DISEASE
     Dosage: 30 MG, PRN
  7. ATENOLOL [Suspect]
     Indication: HYPERTENSION
     Dosage: 25 MG, QD
     Route: 048
  8. FUROSEMIDE [Suspect]
     Dosage: 40 MG, BID
     Route: 048
  9. K-DUR [Suspect]
     Indication: MINERAL SUPPLEMENTATION
     Dosage: 8 MEQ, QD
  10. DEPAKOTE [Suspect]
     Indication: CONVULSION
     Dosage: 500 MG, BID
     Route: 048
  11. DILANTIN [Suspect]
     Indication: CONVULSION
     Dosage: 300 MG, BID
     Route: 048
  12. TYLENOL WITH CODEINE #3 [Suspect]
     Indication: MIGRAINE
     Dosage: UNK UNK, QD
  13. ZANTAC [Suspect]
     Indication: GASTROOESOPHAGEAL REFLUX DISEASE
     Dosage: 300 MG, TID
  14. REMERON [Suspect]
     Indication: INSOMNIA
     Dosage: 30 MG, QD
     Route: 048
  15. ATIVAN [Suspect]
     Indication: NERVOUSNESS
     Dosage: 1 MG, TID
     Route: 048
  16. METHOCARBAMOL [Suspect]
     Indication: MUSCLE SPASMS
     Dosage: 750 MG, PRN
     Route: 048
  17. METHOCARBAMOL [Suspect]
     Indication: NEUROPATHY PERIPHERAL
     Dosage: UNK
  18. NITROSTAT [Suspect]
     Indication: CHEST PAIN
     Dosage: 0.4 MG, PRN
  19. ASPIRIN [Suspect]
     Indication: CHEST PAIN
     Dosage: 81 MG, PRN
  20. NORVASC [Suspect]
     Indication: CARDIAC DISORDER
     Route: 048
  21. NORVASC [Suspect]
     Indication: LUNG DISORDER

REACTIONS (4)
  - Bedridden [Unknown]
  - Amnesia [Recovering/Resolving]
  - Chronic obstructive pulmonary disease [Unknown]
  - Emphysema [Unknown]
